FAERS Safety Report 24318769 (Version 2)
Quarter: 2024Q3

REPORT INFORMATION
  Report Type: Spontaneous
  Country: ES (occurrence: ES)
  Receive Date: 20240913
  Receipt Date: 20240920
  Transmission Date: 20241017
  Serious: Yes (Other)
  Sender: MERCK
  Company Number: ES-009507513-2409ESP004318

PATIENT
  Age: 80 Year
  Sex: Female

DRUGS (2)
  1. KEYTRUDA [Suspect]
     Active Substance: PEMBROLIZUMAB
     Indication: Metastatic malignant melanoma
     Dosage: 1ST CYCLE
  2. KEYTRUDA [Suspect]
     Active Substance: PEMBROLIZUMAB
     Dosage: 2ND CYCLE

REACTIONS (4)
  - Pancytopenia [Unknown]
  - Malignant neoplasm progression [Unknown]
  - Haemolytic anaemia [Unknown]
  - Toxicity to various agents [Unknown]
